FAERS Safety Report 7271899-9 (Version None)
Quarter: 2011Q1

REPORT INFORMATION
  Report Type: 
  Country: None (occurrence: None)
  Receive Date: 20110203
  Receipt Date: 20110201
  Transmission Date: 20110831
  Serious: Yes (Life-Threatening, Hospitalization, Other)
  Sender: FDA-Public Use
  Company Number: FR-BAYER-201018824GPV

PATIENT
  Sex: Female
  Weight: 59 kg

DRUGS (2)
  1. MAGNESIUM [Concomitant]
  2. YAZ [Suspect]
     Indication: CONTRACEPTION
     Dosage: UNK
     Route: 048
     Dates: start: 20090217, end: 20090715

REACTIONS (7)
  - PULMONARY INFARCTION [None]
  - DYSPNOEA [None]
  - COLD SWEAT [None]
  - PAIN IN EXTREMITY [None]
  - CHEST PAIN [None]
  - PULMONARY EMBOLISM [None]
  - MALAISE [None]
